FAERS Safety Report 8847249 (Version 1)
Quarter: 2012Q4

REPORT INFORMATION
  Report Type: 
  Country: DE (occurrence: DE)
  Receive Date: 20121018
  Receipt Date: 20121018
  Transmission Date: 20130627
  Serious: Yes (Other)
  Sender: FDA-Public Use
  Company Number: GXKR2012DE003218

PATIENT

DRUGS (2)
  1. RANITIC [Suspect]
     Indication: GASTRITIS
     Dosage: 300 mg, QD
     Route: 048
     Dates: end: 20120524
  2. OMEPRAZOLE [Suspect]
     Indication: GASTRITIS
     Dosage: 1 DF, QHS
     Route: 048
     Dates: start: 20120524, end: 20120524

REACTIONS (1)
  - Gout [Recovered/Resolved]
